FAERS Safety Report 21053250 (Version 1)
Quarter: 2022Q3

REPORT INFORMATION
  Report Type: Spontaneous
  Country: TW (occurrence: TW)
  Receive Date: 20220707
  Receipt Date: 20220707
  Transmission Date: 20221026
  Serious: Yes (Other)
  Sender: FDA-Public Use
  Company Number: TW-OTSUKA-2022_034852

PATIENT
  Age: 46 Year
  Sex: Female

DRUGS (3)
  1. TOLVAPTAN [Suspect]
     Active Substance: TOLVAPTAN
     Indication: Congenital cystic kidney disease
     Dosage: 45 MG, QD
     Route: 048
     Dates: start: 202008, end: 202204
  2. TOLVAPTAN [Suspect]
     Active Substance: TOLVAPTAN
     Dosage: 45 MG, QD
     Route: 048
     Dates: start: 202008, end: 202204
  3. TOLVAPTAN [Suspect]
     Active Substance: TOLVAPTAN
     Dosage: 35 MG, QD
     Route: 048
     Dates: start: 202008, end: 202204

REACTIONS (5)
  - End stage renal disease [Unknown]
  - Disease progression [Unknown]
  - Dyspnoea [Unknown]
  - Fatigue [Unknown]
  - Incorrect dose administered [Unknown]

NARRATIVE: CASE EVENT DATE: 20220510
